FAERS Safety Report 24275798 (Version 2)
Quarter: 2024Q3

REPORT INFORMATION
  Report Type: Report from Study
  Country: US (occurrence: US)
  Receive Date: 20240903
  Receipt Date: 20240913
  Transmission Date: 20241016
  Serious: Yes (Other)
  Sender: TAKEDA
  Company Number: US-TAKEDA-2024TUS086156

PATIENT
  Sex: Male

DRUGS (1)
  1. BRIGATINIB [Suspect]
     Active Substance: BRIGATINIB
     Indication: Warm autoimmune haemolytic anaemia
     Dosage: 180 MILLIGRAM, QD
     Route: 048

REACTIONS (2)
  - Warm autoimmune haemolytic anaemia [Unknown]
  - Product use in unapproved indication [Unknown]
